FAERS Safety Report 20503129 (Version 2)
Quarter: 2022Q1

REPORT INFORMATION
  Report Type: Report from Study
  Country: JP (occurrence: JP)
  Receive Date: 20220222
  Receipt Date: 20220225
  Transmission Date: 20220423
  Serious: Yes (Hospitalization)
  Sender: FDA-Public Use
  Company Number: JP-ONO-2022JP004398

PATIENT
  Age: 75 Year
  Sex: Female
  Weight: 37.5 kg

DRUGS (14)
  1. NIVOLUMAB [Suspect]
     Active Substance: NIVOLUMAB
     Indication: Anaplastic thyroid cancer
     Dosage: 240 MILLIGRAM, Q2WK
     Route: 041
     Dates: start: 20220114, end: 20220128
  2. LENVATINIB [Suspect]
     Active Substance: LENVATINIB
     Indication: Anaplastic thyroid cancer
     Dosage: 24 MILLIGRAM, QD
     Route: 048
     Dates: start: 20220114, end: 20220213
  3. TRAMADOL [Concomitant]
     Active Substance: TRAMADOL
     Indication: Anaplastic thyroid cancer
     Dosage: 50 MILLIGRAM, Q6H
     Route: 048
  4. LEVOTHYROXINE SODIUM [Concomitant]
     Active Substance: LEVOTHYROXINE SODIUM
     Indication: Anaplastic thyroid cancer
     Dosage: 87.5 MICROGRAM, QD
     Route: 048
     Dates: start: 20220130
  5. ALFAROL [Concomitant]
     Active Substance: ALFACALCIDOL
     Indication: Osteoporosis prophylaxis
     Dosage: 1 MICROGRAM, QD
     Route: 048
  6. CLARITHROMYCIN [Concomitant]
     Active Substance: CLARITHROMYCIN
     Indication: Sinusitis
     Dosage: 200 MILLIGRAM, QD
     Route: 048
  7. CARBOCYSTEINE [Concomitant]
     Active Substance: CARBOCYSTEINE
     Indication: Sinusitis
     Dosage: 500 MILLIGRAM, Q8H
     Route: 048
  8. PRANLUKAST [Concomitant]
     Active Substance: PRANLUKAST
     Indication: Sinusitis
     Dosage: 225 MILLIGRAM, Q12H
     Route: 048
  9. NEXIUM I.V. [Concomitant]
     Active Substance: ESOMEPRAZOLE SODIUM
     Indication: Prophylaxis against gastrointestinal ulcer
     Dosage: 20 MILLIGRAM, QD
     Route: 048
     Dates: start: 20220114
  10. FLUTICASONE FUROATE [Concomitant]
     Active Substance: FLUTICASONE FUROATE
     Indication: Sinusitis
     Dosage: 2 DOSAGE FORM, QD
     Route: 045
  11. AMLODIPINE [Concomitant]
     Active Substance: AMLODIPINE BESYLATE
     Indication: Hypertension
     Dosage: 2.5 MILLIGRAM, QD
     Route: 048
     Dates: start: 20220120
  12. MAGNESIUM OXIDE [Concomitant]
     Active Substance: MAGNESIUM OXIDE
     Indication: Constipation
     Dosage: 330 MILLIGRAM, Q8H
     Route: 048
     Dates: start: 20220206
  13. BROMHEXINE HYDROCHLORIDE [Concomitant]
     Active Substance: BROMHEXINE HYDROCHLORIDE
     Indication: Sinusitis
     Dosage: UNK
     Route: 055
     Dates: start: 20220131
  14. LOXOPROFEN [Concomitant]
     Active Substance: LOXOPROFEN
     Indication: Anaplastic thyroid cancer
     Dosage: UNK, PRN
     Route: 048
     Dates: start: 20220202

REACTIONS (2)
  - Decreased appetite [Recovering/Resolving]
  - Fatigue [Recovering/Resolving]

NARRATIVE: CASE EVENT DATE: 20220214
